FAERS Safety Report 21705027 (Version 1)
Quarter: 2022Q4

REPORT INFORMATION
  Report Type: Report from Study
  Country: US (occurrence: US)
  Receive Date: 20221209
  Receipt Date: 20221209
  Transmission Date: 20230113
  Serious: No
  Sender: FDA-Public Use
  Company Number: US-ABBVIE-4222545

PATIENT
  Sex: Female

DRUGS (1)
  1. HUMIRA [Suspect]
     Active Substance: ADALIMUMAB
     Indication: Rheumatoid arthritis
     Dosage: MAY OR JUNE
     Route: 058
     Dates: start: 2022

REACTIONS (2)
  - Peripheral swelling [Recovering/Resolving]
  - Therapeutic response shortened [Unknown]
